FAERS Safety Report 8114689 (Version 3)
Quarter: 2021Q4

REPORT INFORMATION
  Report Type: Report from Study
  Country: US (occurrence: US)
  Receive Date: 20110831
  Receipt Date: 20211122
  Transmission Date: 20220303
  Serious: Yes (Death, Life-Threatening)
  Sender: FDA-Public Use
  Company Number: US-GENZYME-CLOF-1001756

PATIENT
  Age: 61 Year
  Sex: Female
  Weight: 54 kg

DRUGS (1)
  1. CLOFARABINE [Suspect]
     Active Substance: CLOFARABINE
     Dosage: 45 MG,QD
     Route: 042
     Dates: start: 20110802, end: 20110806

REACTIONS (1)
  - Cholecystitis infective [Fatal]

NARRATIVE: CASE EVENT DATE: 20110816
